FAERS Safety Report 24226267 (Version 1)
Quarter: 2024Q3

REPORT INFORMATION
  Report Type: Spontaneous
  Country: JP (occurrence: JP)
  Receive Date: 20240820
  Receipt Date: 20240820
  Transmission Date: 20241016
  Serious: Yes (Other)
  Sender: BIOLOGICAL E.
  Company Number: JP-BELUSA-2024BELLIT0096

PATIENT

DRUGS (2)
  1. HEPARIN SODIUM [Suspect]
     Active Substance: HEPARIN SODIUM
     Indication: Peripheral artery occlusion
     Route: 065
  2. UROKINASE [Suspect]
     Active Substance: UROKINASE
     Indication: Peripheral artery occlusion
     Dosage: 3000 UNITS/KG
     Route: 065

REACTIONS (1)
  - Drug ineffective [Unknown]
